FAERS Safety Report 5409744-6 (Version None)
Quarter: 2007Q3

REPORT INFORMATION
  Report Type: 
  Country: None (occurrence: None)
  Receive Date: 20070809
  Receipt Date: 20070803
  Transmission Date: 20080115
  Serious: Yes (Life-Threatening)
  Sender: FDA-Public Use
  Company Number: B0481081A

PATIENT
  Age: 22 Year
  Sex: Female

DRUGS (3)
  1. CEFAMEZIN [Suspect]
     Indication: DRUG USE FOR UNKNOWN INDICATION
     Dosage: 1G PER DAY
     Route: 042
     Dates: start: 20070720, end: 20070720
  2. LACTEC [Concomitant]
     Dates: end: 20070720
  3. STEROID [Concomitant]
     Dates: start: 20070725

REACTIONS (16)
  - ANAPHYLACTIC REACTION [None]
  - BLOOD PRESSURE DECREASED [None]
  - CAESAREAN SECTION [None]
  - CHEST PAIN [None]
  - DELIVERY [None]
  - DISSEMINATED INTRAVASCULAR COAGULATION [None]
  - DYSPEPSIA [None]
  - HAEMORRHAGE [None]
  - HEADACHE [None]
  - HYSTERECTOMY [None]
  - LABILE BLOOD PRESSURE [None]
  - PRURITUS [None]
  - RESPIRATION ABNORMAL [None]
  - SHOCK HAEMORRHAGIC [None]
  - URINARY INCONTINENCE [None]
  - UTERINE ATONY [None]
